FAERS Safety Report 9726611 (Version 1)
Quarter: 2013Q4

REPORT INFORMATION
  Report Type: Spontaneous
  Country: IT (occurrence: IT)
  Receive Date: 20131203
  Receipt Date: 20131203
  Transmission Date: 20140711
  Serious: Yes (Life-Threatening)
  Sender: FDA-Public Use
  Company Number: IT-GLAXOSMITHKLINE-B0949566A

PATIENT
  Age: 71 Year
  Sex: Male

DRUGS (1)
  1. SERETIDE [Suspect]
     Indication: ASTHMA
     Route: 055
     Dates: start: 20130101, end: 20130704

REACTIONS (3)
  - Loss of consciousness [Unknown]
  - Atrioventricular block complete [Unknown]
  - Syncope [Unknown]
